FAERS Safety Report 4388881-1 (Version None)
Quarter: 2004Q2

REPORT INFORMATION
  Report Type: 
  Country: None (occurrence: None)
  Receive Date: 20040624
  Receipt Date: 20040622
  Transmission Date: 20050107
  Serious: Yes (Death)
  Sender: FDA-Public Use
  Company Number: TCI2004A01355

PATIENT
  Age: 83 Year
  Sex: Male

DRUGS (3)
  1. LEUPLIN FOR INJECTION KIT3.75 (LEUPROLIDE ACETATE) INJECTION [Suspect]
     Indication: PROSTATE CANCER
     Dosage: 3.75 MG (3.75 MG, 1 IN 28 D)
     Route: 058
     Dates: start: 20040220, end: 20040317
  2. TIMOLOL MALEATE (EYE DROPS) [Concomitant]
  3. NERSET [Concomitant]

REACTIONS (13)
  - AORTIC VALVE INCOMPETENCE [None]
  - BLOOD PH INCREASED [None]
  - COMA [None]
  - DILATATION ATRIAL [None]
  - INTERSTITIAL LUNG DISEASE [None]
  - LOSS OF CONSCIOUSNESS [None]
  - OXYGEN SATURATION DECREASED [None]
  - PCO2 DECREASED [None]
  - PLEURAL EFFUSION [None]
  - PO2 DECREASED [None]
  - PULMONARY VALVE INCOMPETENCE [None]
  - PYREXIA [None]
  - TRICUSPID VALVE INCOMPETENCE [None]
